FAERS Safety Report 7903527-0 (Version None)
Quarter: 2011Q4

REPORT INFORMATION
  Report Type: 
  Country: None (occurrence: None)
  Receive Date: 20111107
  Receipt Date: 20111021
  Transmission Date: 20120403
  Serious: Yes (Hospitalization, Disabling, Other)
  Sender: FDA-Public Use
  Company Number: INT_00029_2011

PATIENT
  Age: 80 Year
  Sex: Female

DRUGS (1)
  1. CEFEPIME [Suspect]
     Indication: ENDOMETRITIS
     Dosage: (2 G 4D)

REACTIONS (8)
  - CONFUSIONAL STATE [None]
  - AGITATION [None]
  - MENTAL STATUS CHANGES [None]
  - ABASIA [None]
  - ENCEPHALOPATHY [None]
  - DYSTONIA [None]
  - ACTIVITIES OF DAILY LIVING IMPAIRED [None]
  - PNEUMONIA [None]
